FAERS Safety Report 24432062 (Version 1)
Quarter: 2024Q4

REPORT INFORMATION
  Report Type: Spontaneous
  Country: NL (occurrence: NL)
  Receive Date: 20241014
  Receipt Date: 20241014
  Transmission Date: 20250115
  Serious: Yes (Hospitalization, Other)
  Sender: CELLTRION
  Company Number: None

PATIENT

DRUGS (5)
  1. BEVACIZUMAB [Suspect]
     Active Substance: BEVACIZUMAB
     Indication: Macular degeneration
     Dosage: 1.25 MG, EVERY 4 WEEKS
     Dates: start: 20010101
  2. BISACODYL [Concomitant]
     Active Substance: BISACODYL
     Dosage: 5 MG (MILLIGRAM)
  3. INSULIN GLARGINE [Concomitant]
     Active Substance: INSULIN GLARGINE
     Dosage: 100E/ML
  4. EUTHYROX [Concomitant]
     Active Substance: LEVOTHYROXINE SODIUM
     Dosage: 125 MICROGRAM
  5. INSULIN ASPART [Concomitant]
     Active Substance: INSULIN ASPART
     Dosage: 1E/ML

REACTIONS (2)
  - Renal impairment [Recovering/Resolving]
  - Off label use [Unknown]
